FAERS Safety Report 6541788-3 (Version None)
Quarter: 2010Q1

REPORT INFORMATION
  Report Type: 
  Country: None (occurrence: None)
  Receive Date: 20100119
  Receipt Date: 20100107
  Transmission Date: 20100710
  Serious: Yes (Hospitalization, Other)
  Sender: FDA-Public Use
  Company Number: PHHY2010BR00835

PATIENT
  Age: 77 Year
  Sex: Female

DRUGS (1)
  1. FORASEQ [Suspect]
     Indication: CHRONIC OBSTRUCTIVE PULMONARY DISEASE
     Dosage: BID
     Dates: end: 20091201

REACTIONS (4)
  - DYSPNOEA [None]
  - EXPIRED DRUG ADMINISTERED [None]
  - OBESITY SURGERY [None]
  - WEIGHT DECREASED [None]
